FAERS Safety Report 11983346 (Version 1)
Quarter: 2016Q1

REPORT INFORMATION
  Report Type: Other
  Country: IT (occurrence: IT)
  Receive Date: 20160201
  Receipt Date: 20160201
  Transmission Date: 20160526
  Serious: Yes (Other)
  Sender: FDA-Public Use
  Company Number: IT-MYLANLABS-2016M1003231

PATIENT

DRUGS (3)
  1. KROVANEG [Concomitant]
     Indication: PRODUCT USED FOR UNKNOWN INDICATION
  2. RISPERIDONE. [Suspect]
     Active Substance: RISPERIDONE
     Indication: ALCOHOLIC PSYCHOSIS
     Dosage: 2 MG DAILY
     Route: 048
     Dates: start: 20150801, end: 20151209
  3. QUETIAPINE [Interacting]
     Active Substance: QUETIAPINE
     Indication: ALCOHOLIC PSYCHOSIS
     Dosage: 75 MG DAILY
     Route: 048

REACTIONS (2)
  - Hyperprolactinaemia [Recovering/Resolving]
  - Drug interaction [Unknown]

NARRATIVE: CASE EVENT DATE: 20151209
